FAERS Safety Report 4797433-0 (Version None)
Quarter: 2005Q4

REPORT INFORMATION
  Report Type: 
  Country: None (occurrence: None)
  Receive Date: 20051006
  Receipt Date: 20051006
  Transmission Date: 20060501
  Serious: Yes (Congenital Anomaly)
  Sender: FDA-Public Use
  Company Number: None

PATIENT
  Sex: Female
  Weight: 68.0396 kg

DRUGS (4)
  1. LEXAPRO [Suspect]
     Indication: DEPRESSION
     Dosage: 20MG DAILY PO
     Route: 048
  2. PRENATAL VITAMINS [Concomitant]
  3. PHENERGAN [Concomitant]
  4. ANTIVERT [Concomitant]

REACTIONS (4)
  - DRUG EXPOSURE DURING PREGNANCY [None]
  - HYPERMETROPIA [None]
  - SMALL FOR DATES BABY [None]
  - STRABISMUS [None]
